FAERS Safety Report 4951425-7 (Version None)
Quarter: 2006Q1

REPORT INFORMATION
  Report Type: 
  Country: None (occurrence: None)
  Receive Date: 20060323
  Receipt Date: 20060315
  Transmission Date: 20060701
  Serious: Yes (Hospitalization, Other)
  Sender: FDA-Public Use
  Company Number: GB-JNJFOC-20060304056

PATIENT
  Sex: Female
  Weight: 81 kg

DRUGS (5)
  1. REMICADE [Suspect]
     Indication: RHEUMATOID ARTHRITIS
     Route: 042
  2. METHOTREXATE [Concomitant]
     Route: 065
  3. FOLIC ACID [Concomitant]
     Route: 065
  4. IBUPROFEN [Concomitant]
     Route: 065
  5. RISEDRONATE [Concomitant]
     Route: 065

REACTIONS (2)
  - GASTRIC POLYPS [None]
  - GASTRITIS [None]
